FAERS Safety Report 5319909-X (Version None)
Quarter: 2007Q2

REPORT INFORMATION
  Report Type: 
  Country: None (occurrence: None)
  Receive Date: 20070503
  Receipt Date: 20070419
  Transmission Date: 20071010
  Serious: Yes (Hospitalization)
  Sender: FDA-Public Use
  Company Number: T200700437

PATIENT
  Age: 36 Year
  Sex: Female
  Weight: 119.7 kg

DRUGS (18)
  1. ` [Suspect]
     Indication: PAIN
     Dosage: 10 MG, PRN, INTRAMUSCULAR
     Route: 030
     Dates: start: 20000101
  2. FENTANYL [Suspect]
     Indication: BREAKTHROUGH PAIN
     Dosage: 600 UG, PRN, BUCCAL
     Route: 002
     Dates: start: 20050627
  3. LORTAB [Suspect]
     Dosage: 10/500 Q4HRS
  4. DURAGESIC-100 [Suspect]
     Indication: PAIN
     Dosage: 25 UG, Q2DAYS, TRANSDERMAL
     Route: 062
     Dates: start: 20060927
  5. ZOLPIDEM TARTRATE [Concomitant]
  6. TIAGABINE HCL [Concomitant]
  7. LEVOTHYROXINE SODIUM [Concomitant]
  8. MONTELUKAST (MONTELUKAST) [Concomitant]
  9. TRIAMCINOLONE ACETONIDE [Concomitant]
  10. XYLOCAINE [Concomitant]
  11. XYREM [Concomitant]
  12. PHENERGAN /00033001/ (PROMETHAZINE) [Concomitant]
  13. VERAPAMIL [Concomitant]
  14. TOPAMAX [Concomitant]
  15. CLONIDINE [Concomitant]
  16. VITAMIN D /00107901/ (ERGOCALCIFEROL) [Concomitant]
  17. CARISOPRODOL (CARISOPRODOL) [Concomitant]
  18. AMITIZA [Concomitant]

REACTIONS (4)
  - ABDOMINAL PAIN LOWER [None]
  - COLONIC POLYP [None]
  - GASTROINTESTINAL MOTILITY DISORDER [None]
  - PROCEDURAL COMPLICATION [None]
